FAERS Safety Report 11101183 (Version 2)
Quarter: 2015Q2

REPORT INFORMATION
  Report Type: Spontaneous
  Country: US (occurrence: US)
  Receive Date: 20150508
  Receipt Date: 20150513
  Transmission Date: 20150821
  Serious: Yes (Other)
  Sender: FDA-Public Use
  Company Number: CHPA2015US005944

PATIENT
  Age: 57 Year
  Sex: Male

DRUGS (2)
  1. VOLTAREN [Suspect]
     Active Substance: DICLOFENAC SODIUM
     Indication: ROTATOR CUFF SYNDROME
  2. VOLTAREN [Suspect]
     Active Substance: DICLOFENAC SODIUM
     Indication: INTERVERTEBRAL DISC DISORDER
     Dosage: UNK, 3 TO 4 TIMES A DAY
     Route: 061

REACTIONS (9)
  - Ligament rupture [Recovering/Resolving]
  - Insomnia [Recovering/Resolving]
  - Drug ineffective for unapproved indication [Unknown]
  - Wound [Recovered/Resolved]
  - Drug administered at inappropriate site [Unknown]
  - Off label use [Unknown]
  - Inappropriate schedule of drug administration [Unknown]
  - Rotator cuff syndrome [Recovering/Resolving]
  - Therapeutic response unexpected [Unknown]
